FAERS Safety Report 5144328-9 (Version None)
Quarter: 2006Q4

REPORT INFORMATION
  Report Type: 
  Country: None (occurrence: None)
  Receive Date: 20061030
  Receipt Date: 20061018
  Transmission Date: 20070319
  Serious: Yes (Hospitalization, Other)
  Sender: FDA-Public Use
  Company Number: US200603004106

PATIENT
  Sex: Female
  Weight: 135.6 kg

DRUGS (1)
  1. ZYPREXA [Suspect]
     Dosage: 10 MG
     Dates: start: 19970827, end: 19980225

REACTIONS (4)
  - CONDITION AGGRAVATED [None]
  - DIABETES MELLITUS [None]
  - LIVER DISORDER [None]
  - PANCREATITIS [None]
